FAERS Safety Report 8274108-7 (Version None)
Quarter: 2012Q2

REPORT INFORMATION
  Report Type: 
  Country: None (occurrence: None)
  Receive Date: 20120411
  Receipt Date: 20120403
  Transmission Date: 20120825
  Serious: Yes (Other)
  Sender: FDA-Public Use
  Company Number: DE-PFIZER INC-2012087837

PATIENT
  Age: 72 Year
  Sex: Female
  Weight: 85 kg

DRUGS (5)
  1. PANTOPRAZOLE [Concomitant]
     Dosage: UNK
  2. ASPIRIN [Concomitant]
     Dosage: UNK
  3. AMOXICILLIN [Suspect]
     Indication: OESOPHAGITIS
     Dosage: UNK
     Dates: start: 20120302
  4. CLARITHROMYCIN [Suspect]
     Indication: OESOPHAGITIS
     Dosage: UNK
     Dates: start: 20120302
  5. PANTOPRAZOLE [Suspect]
     Indication: OESOPHAGITIS
     Dosage: UNK
     Dates: start: 20120302

REACTIONS (1)
  - HAEMATOCHEZIA [None]
